FAERS Safety Report 22159078 (Version 1)
Quarter: 2023Q1

REPORT INFORMATION
  Report Type: Spontaneous
  Country: IT (occurrence: IT)
  Receive Date: 20230331
  Receipt Date: 20230331
  Transmission Date: 20230417
  Serious: Yes (Hospitalization, Other)
  Sender: FDA-Public Use
  Company Number: IT-MINISAL02-915025

PATIENT
  Age: 69 Year
  Sex: Male

DRUGS (3)
  1. AMIODARONE [Suspect]
     Active Substance: AMIODARONE
     Indication: Drug abuse
     Dosage: 12 DOSAGE FORM(200MG)
     Route: 048
     Dates: start: 20220711, end: 20220711
  2. XARELTO [Suspect]
     Active Substance: RIVAROXABAN
     Indication: Drug abuse
     Dosage: 15 MILLIGRAM (10-15 CPS)
     Route: 048
     Dates: start: 20220711, end: 20220711
  3. ZOLPIDEM [Concomitant]
     Active Substance: ZOLPIDEM TARTRATE
     Indication: Drug abuse
     Dosage: UNK
     Route: 065

REACTIONS (2)
  - Bradycardia [Recovering/Resolving]
  - Sopor [Recovering/Resolving]

NARRATIVE: CASE EVENT DATE: 20220711
